FAERS Safety Report 8294008-6 (Version None)
Quarter: 2012Q2

REPORT INFORMATION
  Report Type: 
  Country: None (occurrence: None)
  Receive Date: 20120418
  Receipt Date: 20120409
  Transmission Date: 20120825
  Serious: Yes (Other)
  Sender: FDA-Public Use
  Company Number: JP-VERTEX PHARMACEUTICALS INC.-AE-2012-005201

PATIENT
  Age: 64 Year
  Sex: Male

DRUGS (13)
  1. MYCOPHENOLATE MOFETIL (CELLCEPT) [Concomitant]
     Route: 048
  2. MEDROL [Concomitant]
     Route: 048
  3. NORVASC [Concomitant]
     Route: 048
  4. URSO 250 [Concomitant]
     Route: 048
  5. PURSENNID [Concomitant]
     Route: 048
  6. NEORAL [Concomitant]
     Route: 048
  7. TELAVIC (TELAPREVIR) [Suspect]
     Route: 048
     Dates: start: 20120226
  8. NEORAL [Concomitant]
     Route: 048
  9. MAGNESIUM SULFATE [Concomitant]
     Route: 048
  10. TELAVIC (TELAPREVIR) [Suspect]
     Indication: HEPATITIS C
     Route: 048
     Dates: start: 20120223, end: 20120225
  11. PEGINTERFERON ALFA-2B [Concomitant]
     Indication: HEPATITIS C
     Route: 051
     Dates: start: 20120114
  12. OMEPRAZOLE [Concomitant]
     Route: 048
  13. RIBAVIRIN [Concomitant]
     Indication: HEPATITIS C
     Route: 048
     Dates: start: 20100114

REACTIONS (1)
  - RENAL DISORDER [None]
